FAERS Safety Report 15124774 (Version 1)
Quarter: 2018Q3

REPORT INFORMATION
  Report Type: Spontaneous
  Country: IE (occurrence: IE)
  Receive Date: 20180710
  Receipt Date: 20180710
  Transmission Date: 20181010
  Serious: Yes (Other)
  Sender: FDA-Public Use
  Company Number: IE-B.I. PHARMACEUTICALS,INC./RIDGEFIELD-2018-12-002312

PATIENT
  Age: 65 Year
  Sex: Male
  Weight: 64 kg

DRUGS (1)
  1. JARDIANCE [Suspect]
     Active Substance: EMPAGLIFLOZIN
     Indication: DIABETES MELLITUS
     Route: 048
     Dates: start: 20170727, end: 20180628

REACTIONS (4)
  - Irritability [Unknown]
  - Depressed mood [Unknown]
  - Aggression [Unknown]
  - Anger [Unknown]

NARRATIVE: CASE EVENT DATE: 20171201
